FAERS Safety Report 5747438-8 (Version None)
Quarter: 2008Q2

REPORT INFORMATION
  Report Type: 
  Country: None (occurrence: None)
  Receive Date: 20080523
  Receipt Date: 20080512
  Transmission Date: 20081010
  Serious: Yes (Life-Threatening, Hospitalization)
  Sender: FDA-Public Use
  Company Number: US-NOVOPROD-243765

PATIENT
  Age: 31 Year
  Sex: Female
  Weight: 70.748 kg

DRUGS (12)
  1. NOVOSEVEN [Suspect]
     Indication: OPERATIVE HAEMORRHAGE
     Dosage: 90 UG/KG Q2H
     Dates: start: 20030210, end: 20030220
  2. FRESH FROZEN PLASMA [Concomitant]
     Indication: OPERATIVE HAEMORRHAGE
     Dosage: 1 ML/KG, PRN (6 UNITS GIVEN)
     Dates: start: 20030207, end: 20030210
  3. PLATELETS [Concomitant]
     Indication: OPERATIVE HAEMORRHAGE
  4. CYTOXAN [Concomitant]
     Indication: IMMUNOSUPPRESSION
     Dosage: 1 MG/KG, EVERY 3 WEEKS
     Route: 042
     Dates: start: 20030211, end: 20050222
  5. PREDNISONE TAB [Concomitant]
     Indication: ILL-DEFINED DISORDER
     Dosage: 80 MG, QD
     Dates: start: 20030211
  6. CHEMOTHERAPY NOS [Concomitant]
     Indication: NEOPLASM MALIGNANT
  7. ANALGESICS [Concomitant]
     Indication: ILL-DEFINED DISORDER
  8. ANTIHYPERTENSIVES [Concomitant]
     Indication: ILL-DEFINED DISORDER
  9. GASTROINTESTINAL MEDICATION NOS [Concomitant]
     Indication: ILL-DEFINED DISORDER
  10. ALLERGY MEDICATION [Concomitant]
     Indication: ILL-DEFINED DISORDER
  11. VITAMINS [Concomitant]
     Indication: ILL-DEFINED DISORDER
  12. BLOOD CELLS, PACKED HUMAN [Concomitant]
     Indication: OPERATIVE HAEMORRHAGE
     Dosage: 24 UNITS, UNK
     Dates: start: 20030207, end: 20030201

REACTIONS (1)
  - ISCHAEMIC CEREBRAL INFARCTION [None]
